FAERS Safety Report 5274891-9 (Version None)
Quarter: 2007Q1

REPORT INFORMATION
  Report Type: 
  Country: None (occurrence: None)
  Receive Date: 20061208
  Receipt Date: 20060809
  Transmission Date: 20070707
  Serious: Yes (Hospitalization)
  Sender: FDA-Public Use
  Company Number: 2006UW13445

PATIENT
  Age: 62 Year
  Sex: Female

DRUGS (4)
  1. CRESTOR [Suspect]
     Indication: BLOOD CHOLESTEROL INCREASED
     Dates: start: 20040423, end: 20040618
  2. SELENIUM SULFIDE [Concomitant]
  3. VITAMIN E [Concomitant]
  4. VITAMIN CAP [Concomitant]

REACTIONS (8)
  - ACIDOSIS [None]
  - FATIGUE [None]
  - FRONTAL SINUS OPERATION [None]
  - GLOMERULOSCLEROSIS [None]
  - HYPOKALAEMIA [None]
  - IRON DEFICIENCY ANAEMIA [None]
  - NEPHRITIS INTERSTITIAL [None]
  - RENAL FAILURE ACUTE [None]
